FAERS Safety Report 9019713 (Version 1)
Quarter: 2013Q1

REPORT INFORMATION
  Report Type: Spontaneous
  Country: US (occurrence: US)
  Receive Date: 20130118
  Receipt Date: 20130118
  Transmission Date: 20140127
  Serious: No
  Sender: FDA-Public Use
  Company Number: US-PFIZER INC-2013020417

PATIENT
  Age: 84 Year
  Sex: Male
  Weight: 90.7 kg

DRUGS (3)
  1. CELEBREX [Suspect]
     Indication: ARTHRALGIA
     Dosage: 200 MG, 2X/DAY
     Dates: start: 20130111
  2. CELEBREX [Suspect]
     Dosage: 200 MG, DAILY
  3. ISOSORBIDE DINITRATE [Concomitant]
     Indication: CHEST PAIN
     Dosage: 5 MG, AS NEEDED
     Route: 060

REACTIONS (1)
  - Drug ineffective [Unknown]
